FAERS Safety Report 6894622-6 (Version None)
Quarter: 2010Q3

REPORT INFORMATION
  Report Type: 
  Country: None (occurrence: None)
  Receive Date: 20100802
  Receipt Date: 20100721
  Transmission Date: 20110219
  Serious: Yes (Other)
  Sender: FDA-Public Use
  Company Number: PHHY2010JP48260

PATIENT
  Age: 11 Year
  Sex: Male

DRUGS (11)
  1. TEGRETOL [Suspect]
     Indication: EPILEPSY
  2. LANDSEN [Concomitant]
  3. EXCEGRAN [Concomitant]
  4. MYSTAN [Concomitant]
  5. PHENOBARBITAL TAB [Concomitant]
  6. PHENYTOIN SODIUM [Concomitant]
  7. MEILAX [Concomitant]
  8. OSPOLOT [Concomitant]
  9. POTASSIUM BROMIDE [Concomitant]
  10. GABAPENTIN [Concomitant]
  11. LAMICTAL [Concomitant]

REACTIONS (3)
  - DROP ATTACKS [None]
  - EPILEPSY [None]
  - MYOCLONUS [None]
